FAERS Safety Report 4512025-6 (Version None)
Quarter: 2004Q4

REPORT INFORMATION
  Report Type: 
  Country: None (occurrence: None)
  Receive Date: 20041123
  Receipt Date: 20041112
  Transmission Date: 20050328
  Serious: Yes (Disabling)
  Sender: FDA-Public Use
  Company Number: 2004UW23235

PATIENT
  Age: 60 Year
  Sex: Female

DRUGS (3)
  1. SEROQUEL [Suspect]
     Dosage: 75 MG
  2. LAMICTAL [Suspect]
     Dosage: 100 MG PO
     Route: 048
  3. LITHIUM CARBONATE [Suspect]
     Dosage: 900 MG

REACTIONS (2)
  - DIZZINESS [None]
  - FALL [None]
